FAERS Safety Report 5371512-1 (Version None)
Quarter: 2007Q2

REPORT INFORMATION
  Report Type: 
  Country: None (occurrence: None)
  Receive Date: 20070615
  Receipt Date: 20060906
  Transmission Date: 20071010
  Serious: Yes (Other)
  Sender: FDA-Public Use
  Company Number: 200617337US

PATIENT
  Age: 64 Year
  Sex: Male

DRUGS (21)
  1. LANTUS [Suspect]
     Indication: DIABETES MELLITUS INSULIN-DEPENDENT
     Dosage: 74 U;
  2. LANTUS [Suspect]
     Indication: DIABETES MELLITUS INSULIN-DEPENDENT
     Dosage: 54 U;
  3. LANTUS [Suspect]
     Indication: DIABETES MELLITUS INSULIN-DEPENDENT
     Dosage: 64 U HS;
  4. PREDNISONE TAB [Suspect]
  5. INSULIN (HUMALOG  /00030501/ [Concomitant]
  6. LORATADINE (CLARITINE) [Concomitant]
  7. SALBUTAMOL [Concomitant]
  8. MOMETASONE FUROATE (NASONEX) [Concomitant]
  9. GUAIFENESIN (MUCINEX) [Concomitant]
  10. SIMVASTATIN [Concomitant]
  11. EZETIMIBE (VYTORIN) [Concomitant]
  12. ASPIRIN [Concomitant]
  13. DIPYRIDAMOLE [Concomitant]
  14. IMDUR [Concomitant]
  15. HYDROCHLOROTHIAZIDE [Concomitant]
  16. LOSARTAN POTASSIUM (HYZAAR) [Concomitant]
  17. FUROSEMIDE (LASIX  /00032601/) [Concomitant]
  18. BRIMONIDINE TARTRATE (ALPHAGAN /01341102/) [Concomitant]
  19. LATANOPROST (XALATAN /01297301/) [Concomitant]
  20. SALBUTAMOL [Concomitant]
  21. IPRATROPIUM BROMIDE (COMBIVENT /01033501/)C [Concomitant]

REACTIONS (4)
  - BLOOD GLUCOSE DECREASED [None]
  - BLOOD GLUCOSE FLUCTUATION [None]
  - HYPERGLYCAEMIA [None]
  - HYPOGLYCAEMIA [None]
